FAERS Safety Report 5143391-9 (Version None)
Quarter: 2006Q4

REPORT INFORMATION
  Report Type: 
  Country: None (occurrence: None)
  Receive Date: 20061030
  Receipt Date: 20061019
  Transmission Date: 20070319
  Serious: Yes (Other)
  Sender: FDA-Public Use
  Company Number: 2006112743

PATIENT
  Age: 81 Year
  Sex: Female

DRUGS (4)
  1. XALATAN [Suspect]
     Indication: OPEN ANGLE GLAUCOMA
     Dosage: 1 DROP (1 DROP, 1 IN 1 D, TOPICAL
     Route: 061
  2. XALACOM (LATANOPROST, TIMOLOL) [Suspect]
     Indication: OPEN ANGLE GLAUCOMA
     Dosage: 1 DROP (1 DROP, 1 IN 1 D), TOPICAL
     Route: 061
     Dates: start: 20060910
  3. TIMOLOL MALEATE [Concomitant]
  4. ALPHAGAN [Concomitant]

REACTIONS (3)
  - CILIARY BODY DISORDER [None]
  - EYE OEDEMA [None]
  - INTRAOCULAR PRESSURE INCREASED [None]
